FAERS Safety Report 13725462 (Version 1)
Quarter: 2017Q3

REPORT INFORMATION
  Report Type: Spontaneous
  Country: US (occurrence: US)
  Receive Date: 20170706
  Receipt Date: 20170706
  Transmission Date: 20171127
  Serious: No
  Sender: FDA-Public Use
  Company Number: None

PATIENT
  Age: 60 Year
  Sex: Female
  Weight: 79.65 kg

DRUGS (5)
  1. OXYCODONE RESTASIS [Concomitant]
  2. MULTI VITAMIN [Concomitant]
     Active Substance: VITAMINS
  3. BIOTIN [Concomitant]
     Active Substance: BIOTIN
  4. TEMAZEPAM. [Concomitant]
     Active Substance: TEMAZEPAM
  5. ATROVASTATIN 80 MG [Suspect]
     Active Substance: ATORVASTATIN CALCIUM
     Indication: BLOOD CHOLESTEROL
     Dosage: ?          OTHER STRENGTH:MG;QUANTITY:30 TABLET(S);?
     Route: 048
     Dates: start: 20160524, end: 20170625

REACTIONS (6)
  - Myalgia [None]
  - Alopecia [None]
  - Mental disorder [None]
  - Depressed mood [None]
  - Withdrawal syndrome [None]
  - Muscle spasms [None]
